FAERS Safety Report 22331911 (Version 6)
Quarter: 2023Q4

REPORT INFORMATION
  Report Type: Spontaneous
  Country: JP (occurrence: JP)
  Receive Date: 20230517
  Receipt Date: 20231128
  Transmission Date: 20240110
  Serious: Yes (Other)
  Sender: FDA-Public Use
  Company Number: JP-OTSUKA-2023_012432

PATIENT
  Age: 42 Year
  Sex: Male

DRUGS (8)
  1. REXULTI [Interacting]
     Active Substance: BREXPIPRAZOLE
     Indication: Schizophrenia
     Dosage: 1MG, UNK
     Route: 048
     Dates: start: 202112
  2. REXULTI [Interacting]
     Active Substance: BREXPIPRAZOLE
     Dosage: 2MG/DAY
     Route: 048
     Dates: end: 20231001
  3. INTUNIV [Interacting]
     Active Substance: GUANFACINE HYDROCHLORIDE
     Indication: Product used for unknown indication
     Dosage: 2MG/DAY
     Route: 048
     Dates: end: 20230531
  4. INTUNIV [Interacting]
     Active Substance: GUANFACINE HYDROCHLORIDE
     Dosage: DOSE REDUCED
     Route: 048
     Dates: start: 2023
  5. FLUNITRAZEPAM [Suspect]
     Active Substance: FLUNITRAZEPAM
     Indication: Product used for unknown indication
     Dosage: 2MG/DAY
     Route: 048
  6. OLANZAPINE [Suspect]
     Active Substance: OLANZAPINE
     Indication: Product used for unknown indication
     Dosage: 5MG, UNK
     Route: 048
     Dates: start: 202112
  7. OLANZAPINE [Suspect]
     Active Substance: OLANZAPINE
     Dosage: 2.5MG/DAY
     Route: 048
  8. ALPRAZOLAM [Suspect]
     Active Substance: ALPRAZOLAM
     Indication: Product used for unknown indication
     Dosage: 1.2MG/DAY
     Route: 048

REACTIONS (2)
  - Hypothyroidism [Not Recovered/Not Resolved]
  - Drug interaction [Unknown]

NARRATIVE: CASE EVENT DATE: 20211220
